FAERS Safety Report 5542944-3 (Version None)
Quarter: 2007Q4

REPORT INFORMATION
  Report Type: 
  Country: None (occurrence: None)
  Receive Date: 20071123
  Receipt Date: 20070506
  Transmission Date: 20080405
  Serious: Yes (Other)
  Sender: FDA-Public Use
  Company Number: US-JNJFOC-20070403577

PATIENT
  Age: 80 Year
  Sex: Female
  Weight: 44.4525 kg

DRUGS (3)
  1. LEVAQUIN [Suspect]
     Indication: CHRONIC OBSTRUCTIVE PULMONARY DISEASE
     Dosage: 500MG, 1 IN 1 DAY, ORAL
     Route: 048
     Dates: start: 20070101, end: 20070101
  2. CALCIUM (CALCIUM) [Concomitant]
  3. MIACALCIN (CALCITONIN, SALMON) SPRAY [Concomitant]

REACTIONS (1)
  - TENDON RUPTURE [None]
